FAERS Safety Report 11936573 (Version 4)
Quarter: 2016Q1

REPORT INFORMATION
  Report Type: Spontaneous
  Country: RS (occurrence: RS)
  Receive Date: 20160121
  Receipt Date: 20160219
  Transmission Date: 20160526
  Serious: Yes (Death, Hospitalization, Other)
  Sender: FDA-Public Use
  Company Number: RS-PFIZER INC-2016018726

PATIENT
  Age: 24 Year
  Sex: Female

DRUGS (3)
  1. AMLODIPINE BESILATE [Suspect]
     Active Substance: AMLODIPINE BESYLATE
     Dosage: 150 MG, UNK (30 TABLETS)
     Route: 048
  2. METFORMIN [Suspect]
     Active Substance: METFORMIN HYDROCHLORIDE
     Dosage: 10 G, UNK, (20 TABLETS)
     Route: 048
  3. GLICLAZIDE [Suspect]
     Active Substance: GLICLAZIDE
     Dosage: 2.4 G, UNK, (30 TABLETS)
     Route: 048

REACTIONS (7)
  - Poisoning deliberate [Unknown]
  - Metabolic acidosis [Unknown]
  - Intentional overdose [Fatal]
  - Hyperglycaemia [Unknown]
  - Cardiac arrest [Fatal]
  - Hypotension [Unknown]
  - Sinus tachycardia [Unknown]
